FAERS Safety Report 9504872 (Version 2)
Quarter: 2013Q3

REPORT INFORMATION
  Report Type: Spontaneous
  Country: US (occurrence: US)
  Receive Date: 20130906
  Receipt Date: 20130906
  Transmission Date: 20140515
  Serious: Yes (Hospitalization)
  Sender: FDA-Public Use
  Company Number: US-LUNDBECK-DKLU1093013

PATIENT
  Age: 1 Year
  Sex: Male

DRUGS (5)
  1. SABRIL (FOR ORAL SOLUTION) [Suspect]
     Indication: INFANTILE SPASMS
     Route: 048
     Dates: start: 20130207
  2. SABRIL (FOR ORAL SOLUTION) [Suspect]
     Indication: COMPLEX PARTIAL SEIZURES
     Route: 048
  3. SABRIL (FOR ORAL SOLUTION) [Suspect]
     Indication: EPILEPSY
     Route: 048
  4. ONFI [Concomitant]
     Indication: PRODUCT USED FOR UNKNOWN INDICATION
     Dates: start: 201209
  5. KEPPRA [Concomitant]
     Indication: PRODUCT USED FOR UNKNOWN INDICATION
     Dates: start: 201203

REACTIONS (4)
  - Sepsis [Recovering/Resolving]
  - Gastrostomy [Recovering/Resolving]
  - Pneumonia aspiration [Recovering/Resolving]
  - Convulsion [Recovering/Resolving]
